FAERS Safety Report 7049427-2 (Version None)
Quarter: 2010Q4

REPORT INFORMATION
  Report Type: 
  Country: None (occurrence: None)
  Receive Date: 20101018
  Receipt Date: 20101004
  Transmission Date: 20110411
  Serious: Yes (Hospitalization)
  Sender: FDA-Public Use
  Company Number: US-ROCHE-733705

PATIENT
  Sex: Female

DRUGS (9)
  1. AVASTIN [Suspect]
     Indication: NON-SMALL CELL LUNG CANCER METASTATIC
     Route: 042
     Dates: start: 20100701, end: 20100902
  2. ALIMTA [Concomitant]
  3. ACTONEL [Concomitant]
     Dosage: DRUG NAME REPORTED AS: ACTINAL.
  4. PREDNISONE [Concomitant]
  5. PREDNISONE [Concomitant]
     Dosage: SLIDING DOSE.
  6. METOPROLOL [Concomitant]
     Dosage: DRUG NAME REPORTED AS: METROPOLOL.
  7. SIMVASTATIN [Concomitant]
     Dosage: DRUG NAME REPORTED AS: SYNVASTIN
  8. MECLIZINE [Concomitant]
     Dosage: DRUG NAME REPORTED AS: MECLAZINE.
  9. ZYPREXA [Concomitant]

REACTIONS (3)
  - ABASIA [None]
  - DIZZINESS [None]
  - VISION BLURRED [None]
